FAERS Safety Report 6340573-5 (Version None)
Quarter: 2009Q3

REPORT INFORMATION
  Report Type: 
  Country: None (occurrence: None)
  Receive Date: 20090902
  Receipt Date: 20090826
  Transmission Date: 20100115
  Serious: Yes (Death)
  Sender: FDA-Public Use
  Company Number: GXKR2009GB09594

PATIENT
  Age: 84 Year
  Sex: Female

DRUGS (1)
  1. ALENDRONIC ACID [Suspect]
     Indication: OSTEOPOROSIS
     Dosage: ORAL
     Route: 048

REACTIONS (6)
  - CHEST PAIN [None]
  - DEHYDRATION [None]
  - FALL [None]
  - HYPOPHAGIA [None]
  - OESOPHAGITIS [None]
  - PRODUCT SUBSTITUTION ISSUE [None]
